FAERS Safety Report 7465342-4 (Version None)
Quarter: 2011Q2

REPORT INFORMATION
  Report Type: 
  Country: None (occurrence: None)
  Receive Date: 20110509
  Receipt Date: 20110503
  Transmission Date: 20111010
  Serious: Yes (Hospitalization)
  Sender: FDA-Public Use
  Company Number: US-BRISTOL-MYERS SQUIBB COMPANY-15714165

PATIENT
  Sex: Male

DRUGS (1)
  1. ABILIFY [Suspect]
     Dosage: STARTED SINCE THE AGE OF 12 AND STOPPED ONE AND HALF YEAR AGO.

REACTIONS (3)
  - WEIGHT INCREASED [None]
  - MENTAL DISORDER [None]
  - GYNAECOMASTIA [None]
